FAERS Safety Report 24582464 (Version 1)
Quarter: 2024Q4

REPORT INFORMATION
  Report Type: Spontaneous
  Country: CN (occurrence: CN)
  Receive Date: 20241106
  Receipt Date: 20241106
  Transmission Date: 20250114
  Serious: Yes (Hospitalization)
  Sender: BEIGENE
  Company Number: CN-BEIGENE-BGN-2024-017208

PATIENT

DRUGS (5)
  1. TISLELIZUMAB [Suspect]
     Active Substance: TISLELIZUMAB
     Indication: Lung neoplasm malignant
     Dosage: 200 MILLIGRAM
     Route: 041
     Dates: start: 20241007
  2. CATEQUENTINIB DIHYDROCHLORIDE [Suspect]
     Active Substance: CATEQUENTINIB DIHYDROCHLORIDE
     Indication: Lung neoplasm malignant
     Dosage: 12 MILLIGRAM, QD
     Route: 048
     Dates: start: 20241007
  3. DOCETAXEL [Suspect]
     Active Substance: DOCETAXEL
     Indication: Lung neoplasm malignant
     Dosage: 120 MILLIGRAM
     Route: 041
     Dates: start: 20241007
  4. SODIUM CHLORIDE [Concomitant]
     Active Substance: SODIUM CHLORIDE
     Indication: Vehicle solution use
     Dosage: 100 MILLILITER
     Route: 041
     Dates: start: 20241007, end: 20241007
  5. SODIUM CHLORIDE [Concomitant]
     Active Substance: SODIUM CHLORIDE
     Dosage: 250 MILLILITER
     Route: 041
     Dates: start: 20241007, end: 20241007

REACTIONS (1)
  - Myelosuppression [Recovering/Resolving]

NARRATIVE: CASE EVENT DATE: 20241013
